FAERS Safety Report 9303256 (Version 1)
Quarter: 2013Q2

REPORT INFORMATION
  Report Type: Spontaneous
  Country: US (occurrence: US)
  Receive Date: 20130522
  Receipt Date: 20130522
  Transmission Date: 20140414
  Serious: No
  Sender: FDA-Public Use
  Company Number: US-PFIZER INC-2013155349

PATIENT
  Sex: 0

DRUGS (1)
  1. ACCUPRIL [Suspect]
     Dosage: UNK

REACTIONS (3)
  - Urticaria [Unknown]
  - Lacrimation increased [Unknown]
  - Rhinorrhoea [Unknown]
